FAERS Safety Report 12875991 (Version 1)
Quarter: 2016Q4

REPORT INFORMATION
  Report Type: Spontaneous
  Country: US (occurrence: US)
  Receive Date: 20161024
  Receipt Date: 20161024
  Transmission Date: 20170207
  Serious: No
  Sender: FDA-Public Use
  Company Number: US-JAZZ-2016-US-015114

PATIENT
  Sex: Male

DRUGS (15)
  1. OMEPRAZOLE. [Concomitant]
     Active Substance: OMEPRAZOLE
  2. CLOBETASOL [Concomitant]
     Active Substance: CLOBETASOL
  3. XYREM [Suspect]
     Active Substance: SODIUM OXYBATE
     Dosage: 2.25 G, QD
     Route: 048
     Dates: start: 201608, end: 201608
  4. XYREM [Suspect]
     Active Substance: SODIUM OXYBATE
     Indication: NARCOLEPSY
     Dosage: 2.25 G, BID
     Route: 048
     Dates: start: 201608, end: 201608
  5. CAFFEINE. [Concomitant]
     Active Substance: CAFFEINE
  6. KETOCONAZOLE. [Concomitant]
     Active Substance: KETOCONAZOLE
  7. DICLOFENAC SODIUM. [Concomitant]
     Active Substance: DICLOFENAC SODIUM
  8. VITAMIN B12 [Concomitant]
     Active Substance: CYANOCOBALAMIN
  9. KIRKLANDS CHILDRENS ALLER TEC [Concomitant]
     Active Substance: CETIRIZINE HYDROCHLORIDE
  10. ORENCIA [Concomitant]
     Active Substance: ABATACEPT
  11. XYREM [Suspect]
     Active Substance: SODIUM OXYBATE
     Dosage: 2.25 G, BID
     Route: 048
     Dates: start: 201608
  12. FLUOXETINE HCL [Concomitant]
     Active Substance: FLUOXETINE HYDROCHLORIDE
  13. NUVIGIL [Concomitant]
     Active Substance: ARMODAFINIL
  14. DIPHENOXYLATE/ATROPINE [Concomitant]
     Active Substance: ATROPINE\DIPHENOXYLATE
  15. LOPERAMIDE HCL [Concomitant]
     Active Substance: LOPERAMIDE HYDROCHLORIDE

REACTIONS (1)
  - Pharyngeal oedema [Unknown]
